FAERS Safety Report 17282104 (Version 1)
Quarter: 2020Q1

REPORT INFORMATION
  Report Type: Spontaneous
  Country: ES (occurrence: ES)
  Receive Date: 20200117
  Receipt Date: 20200117
  Transmission Date: 20200409
  Serious: Yes (Other)
  Sender: FDA-Public Use
  Company Number: ES-009507513-2001ESP004197

PATIENT
  Age: 64 Year
  Sex: Male

DRUGS (5)
  1. HIDROFEROL [Concomitant]
     Active Substance: CALCIFEDIOL
     Dosage: 16 GTT DROPS (1/12 MILLILITRE), QW (STRENGTH: 0.1 MG/ML),1 BOTTLE OF 10 ML
     Route: 048
     Dates: start: 20120913
  2. NAPRILENE [Concomitant]
     Active Substance: ENALAPRIL MALEATE
     Dosage: 20 MILLIGRAM, QD (30 TABLETS)
     Route: 048
     Dates: start: 20190930, end: 20191128
  3. ADIRO [Concomitant]
     Active Substance: ASPIRIN
     Dosage: 100 MILLIGRAM, QD (GENERIC, 30 TABLETS)
     Route: 048
     Dates: start: 20120814
  4. ORVATEZ 10 MG/40 MG COMPRIMIDOS RECUBIERTOS CON PELICULA [Suspect]
     Active Substance: ATORVASTATIN CALCIUM\EZETIMIBE
     Indication: MYOCARDIAL ISCHAEMIA
     Dosage: 1 DOSAGE FORM, QD (30 TABLETS)
     Route: 048
     Dates: start: 20170607, end: 20190614
  5. ATORVASTATIN [Concomitant]
     Active Substance: ATORVASTATIN
     Dosage: 40 MILLIGRAM, QD (GENERIC, 28 TABLETS)
     Route: 048
     Dates: start: 20190925

REACTIONS (5)
  - Myalgia [Recovered/Resolved]
  - Fall [Recovered/Resolved]
  - Paraesthesia [Recovered/Resolved]
  - Hypoaesthesia [Recovered/Resolved]
  - Muscular weakness [Recovered/Resolved]

NARRATIVE: CASE EVENT DATE: 20170607
